FAERS Safety Report 14073675 (Version 1)
Quarter: 2017Q4

REPORT INFORMATION
  Report Type: Spontaneous
  Country: US (occurrence: US)
  Receive Date: 20171010
  Receipt Date: 20171010
  Transmission Date: 20180321
  Serious: No
  Sender: FDA-Public Use
  Company Number: US-JNJFOC-20170800720

PATIENT
  Age: 84 Year
  Sex: Female
  Weight: 77.11 kg

DRUGS (2)
  1. TYLENOL 8 HR ARTHRITIS PAIN [Suspect]
     Active Substance: ACETAMINOPHEN
     Route: 048
  2. TYLENOL 8 HR ARTHRITIS PAIN [Suspect]
     Active Substance: ACETAMINOPHEN
     Indication: PAIN IN EXTREMITY
     Route: 048

REACTIONS (7)
  - Incorrect dose administered [Unknown]
  - Nervous system disorder [Recovered/Resolved]
  - Lung disorder [Recovered/Resolved]
  - Drug hypersensitivity [Recovered/Resolved]
  - Tremor [Recovered/Resolved]
  - Urticaria [Recovered/Resolved]
  - Cardiac disorder [Recovered/Resolved]
